FAERS Safety Report 21359561 (Version 1)
Quarter: 2022Q3

REPORT INFORMATION
  Report Type: Spontaneous
  Country: FR (occurrence: FR)
  Receive Date: 20220921
  Receipt Date: 20220921
  Transmission Date: 20221027
  Serious: Yes (Other)
  Sender: FDA-Public Use
  Company Number: FR-MYLANLABS-2022M1095113

PATIENT
  Age: 7 Year
  Sex: Male

DRUGS (4)
  1. CETIRIZINE [Suspect]
     Active Substance: CETIRIZINE HYDROCHLORIDE
     Indication: Vernal keratoconjunctivitis
     Dosage: UNK
     Route: 048
  2. PROTOPIC [Concomitant]
     Active Substance: TACROLIMUS
     Indication: Vernal keratoconjunctivitis
     Dosage: UNK
     Route: 065
  3. CYCLOSPORINE [Concomitant]
     Active Substance: CYCLOSPORINE
     Indication: Vernal keratoconjunctivitis
     Dosage: UNK
     Route: 047
  4. KETOTIFEN [Concomitant]
     Active Substance: KETOTIFEN
     Indication: Vernal keratoconjunctivitis
     Dosage: UNK
     Route: 047

REACTIONS (1)
  - Drug ineffective [Unknown]
